FAERS Safety Report 5816015-2 (Version None)
Quarter: 2008Q3

REPORT INFORMATION
  Report Type: 
  Country: None (occurrence: None)
  Receive Date: 20080721
  Receipt Date: 20080712
  Transmission Date: 20090109
  Serious: Yes (Other)
  Sender: FDA-Public Use
  Company Number: PHHY2008BR13905

PATIENT
  Age: 48 Year
  Sex: Male
  Weight: 90 kg

DRUGS (4)
  1. LAMISIL [Suspect]
     Indication: ONYCHOMYCOSIS
     Dosage: 250 MG, UNK
     Route: 048
     Dates: start: 20040101
  2. LUVOX [Concomitant]
     Indication: ANTIDEPRESSANT THERAPY
     Dosage: 1/2 TABLET AT NIGHT
  3. LUVOX [Concomitant]
     Dosage: UNK
  4. METFORMIN HYDROCHLORIDE [Concomitant]
     Indication: DIABETES MELLITUS
     Dosage: 2 TABLETS/DAY
     Route: 048

REACTIONS (5)
  - HYPERSENSITIVITY [None]
  - HYPERTENSION [None]
  - RASH ERYTHEMATOUS [None]
  - SKIN DEPIGMENTATION [None]
  - SKIN EXFOLIATION [None]
